APPROVED DRUG PRODUCT: SAMSCA
Active Ingredient: TOLVAPTAN
Strength: 15MG
Dosage Form/Route: TABLET;ORAL
Application: N022275 | Product #001 | TE Code: AB1
Applicant: OTSUKA PHARMACEUTICAL CO LTD
Approved: May 19, 2009 | RLD: Yes | RS: No | Type: RX

PATENTS:
Patent 8501730 | Expires: Sep 1, 2026
Patent 10905694 | Expires: Apr 7, 2030